FAERS Safety Report 15669921 (Version 1)
Quarter: 2018Q4

REPORT INFORMATION
  Report Type: Spontaneous
  Country: US (occurrence: US)
  Receive Date: 20181129
  Receipt Date: 20181129
  Transmission Date: 20190205
  Serious: No
  Sender: FDA-Public Use
  Company Number: US-ASTRAZENECA-2018SF36388

PATIENT
  Age: 74 Year
  Sex: Male

DRUGS (1)
  1. TUDORZA PRESSAIR [Suspect]
     Active Substance: ACLIDINIUM BROMIDE
     Route: 055

REACTIONS (4)
  - Product dose omission [Unknown]
  - Intentional device misuse [Unknown]
  - Back pain [Unknown]
  - Device malfunction [Unknown]

NARRATIVE: CASE EVENT DATE: 201810
